FAERS Safety Report 15645778 (Version 2)
Quarter: 2019Q2

REPORT INFORMATION
  Report Type: Report from Study
  Country: GB (occurrence: GB)
  Receive Date: 20181121
  Receipt Date: 20190619
  Transmission Date: 20190711
  Serious: Yes (Other)
  Sender: FDA-Public Use
  Company Number: PHHY2018GB160780

PATIENT
  Sex: Female

DRUGS (2)
  1. ERELZI [Suspect]
     Active Substance: ETANERCEPT-SZZS
     Indication: PSORIATIC ARTHROPATHY
     Dosage: 50 MG, QW, PRE FILLED PEN
     Route: 058
     Dates: start: 20171117
  2. ERELZI [Suspect]
     Active Substance: ETANERCEPT-SZZS
     Dosage: 50 MG, QW, PRE FILLED PEN
     Route: 058

REACTIONS (3)
  - Lower respiratory tract infection [Not Recovered/Not Resolved]
  - Viral infection [Not Recovered/Not Resolved]
  - Nasopharyngitis [Unknown]
